FAERS Safety Report 7322826-7 (Version None)
Quarter: 2011Q1

REPORT INFORMATION
  Report Type: 
  Country: None (occurrence: None)
  Receive Date: 20110301
  Receipt Date: 20110216
  Transmission Date: 20110831
  Serious: Yes (Death, Hospitalization, Other)
  Sender: FDA-Public Use
  Company Number: JP-BAYER-201011511BYL

PATIENT
  Sex: Male
  Weight: 56 kg

DRUGS (8)
  1. NEXAVAR [Suspect]
     Indication: RENAL CELL CARCINOMA
     Dosage: 200 MG, BID
     Route: 048
     Dates: start: 20091109, end: 20100124
  2. MS CONTIN [Concomitant]
     Dosage: DAILY DOSE 20 MG
     Route: 048
     Dates: start: 20100124
  3. URSO 250 [Concomitant]
     Dosage: 100 MG, TID
     Route: 048
     Dates: end: 20100831
  4. NEXAVAR [Suspect]
     Route: 048
     Dates: start: 20100201, end: 20100402
  5. VOLTAREN [Suspect]
     Dosage: 25 MG, PRN
     Route: 054
     Dates: start: 20100101, end: 20100124
  6. VOLTAREN [Suspect]
     Indication: PAIN MANAGEMENT
     Dosage: 25 MG, PRN
     Route: 054
     Dates: start: 20091112, end: 20100124
  7. AMARYL [Concomitant]
     Indication: DIABETES MELLITUS
     Dosage: DAILY DOSE .5 MG
     Route: 048
     Dates: end: 20100831
  8. NORVASC [Concomitant]
     Indication: HYPERTENSION
     Dosage: DAILY DOSE 5 MG
     Route: 048
     Dates: end: 20100831

REACTIONS (7)
  - NAUSEA [None]
  - HAEMATEMESIS [None]
  - GASTRIC ULCER [None]
  - HYPERTENSION [None]
  - RENAL CELL CARCINOMA [None]
  - DECREASED APPETITE [None]
  - DROWNING [None]
